FAERS Safety Report 11212608 (Version 1)
Quarter: 2015Q2

REPORT INFORMATION
  Report Type: Report from Study
  Country: CN (occurrence: CN)
  Receive Date: 20150623
  Receipt Date: 20150623
  Transmission Date: 20150821
  Serious: Yes (Other)
  Sender: FDA-Public Use
  Company Number: CN-BAYER-2015-294590

PATIENT
  Age: 62 Year

DRUGS (1)
  1. NEXAVAR [Suspect]
     Active Substance: SORAFENIB
     Dosage: UNK
     Route: 048

REACTIONS (4)
  - Abdominal distension [None]
  - Hypoglycaemia [None]
  - Diarrhoea [None]
  - Coma [None]
